FAERS Safety Report 5317463-X (Version None)
Quarter: 2007Q2

REPORT INFORMATION
  Report Type: 
  Country: None (occurrence: None)
  Receive Date: 20070507
  Receipt Date: 20070425
  Transmission Date: 20071010
  Serious: Yes (Hospitalization)
  Sender: FDA-Public Use
  Company Number: PHBS2006JP19871

PATIENT
  Age: 70 Year
  Sex: Female

DRUGS (4)
  1. ZOMETA [Suspect]
     Indication: BONE LESION
     Dosage: 4 MG, UNK
     Route: 042
  2. AREDIA [Suspect]
     Dates: start: 20050624
  3. HERCEPTIN [Concomitant]
  4. DOCETAXEL [Concomitant]

REACTIONS (1)
  - OSTEONECROSIS [None]
